FAERS Safety Report 4414631-6 (Version None)
Quarter: 2004Q3

REPORT INFORMATION
  Report Type: 
  Country: None (occurrence: None)
  Receive Date: 20040729
  Receipt Date: 20040722
  Transmission Date: 20050211
  Serious: Yes (Hospitalization, Other)
  Sender: FDA-Public Use
  Company Number: 200410730BVD

PATIENT
  Age: 75 Year
  Sex: Female
  Weight: 57 kg

DRUGS (7)
  1. GLUCOBAY [Suspect]
     Indication: DIABETES MELLITUS
     Dosage: 100 MG, TID, ORAL
     Route: 048
  2. ACE INHIBITOR (ACE INHIBITOR NOS) [Suspect]
     Indication: HYPERTENSION
     Dosage: 25 MG, TOTAL DAILY, ORAL
     Route: 048
  3. ASPIRIN [Suspect]
     Indication: CARDIAC DISORDER
     Dosage: 100 MG, TOTAL DAILY, ORAL
     Route: 048
     Dates: end: 20031101
  4. PROMETHAZINE [Suspect]
     Indication: RESTLESSNESS
     Dosage: 25MG, TID, ORAL
     Route: 048
  5. DIGITOXIN [Concomitant]
  6. FALITHROM [Concomitant]
  7. SOTALEX MITE [Concomitant]

REACTIONS (6)
  - ATRIAL FIBRILLATION [None]
  - CIRCULATORY COLLAPSE [None]
  - DRUG INTERACTION [None]
  - ELECTROCARDIOGRAM ST SEGMENT DEPRESSION [None]
  - GASTROINTESTINAL DISORDER [None]
  - HYPOGLYCAEMIA [None]
